FAERS Safety Report 9971582 (Version 1)
Quarter: 2014Q1

REPORT INFORMATION
  Report Type: Spontaneous
  Country: US (occurrence: None)
  Receive Date: 20140127
  Receipt Date: 20140127
  Transmission Date: 20141002
  Serious: Yes (Other)
  Sender: FDA-Public Use
  Company Number: 1236760

PATIENT
  Age: 18 Year
  Sex: Male

DRUGS (2)
  1. RITUXAN [Suspect]
     Indication: GRANULOMA
     Dates: start: 201301
  2. RITUXAN [Suspect]
     Indication: VASCULITIS
     Dates: start: 201301

REACTIONS (1)
  - Infusion related reaction [None]
